FAERS Safety Report 9406447 (Version 1)
Quarter: 2013Q3

REPORT INFORMATION
  Report Type: Spontaneous
  Country: US (occurrence: US)
  Receive Date: 20130718
  Receipt Date: 20130718
  Transmission Date: 20140515
  Serious: No
  Sender: FDA-Public Use
  Company Number: US-009507513-1306USA009409

PATIENT
  Sex: Female

DRUGS (3)
  1. DEXAMETHASONE [Suspect]
  2. VITAMIN D (UNSPECIFIED) [Suspect]
     Dosage: HIGH DOSE
  3. GLOBULIN, IMMUNE [Suspect]
     Route: 042

REACTIONS (1)
  - Exposure during pregnancy [Unknown]
